FAERS Safety Report 14707906 (Version 4)
Quarter: 2020Q1

REPORT INFORMATION
  Report Type: Spontaneous
  Country: US (occurrence: US)
  Receive Date: 20180403
  Receipt Date: 20200327
  Transmission Date: 20200409
  Serious: Yes (Hospitalization)
  Sender: FDA-Public Use
  Company Number: US-PFIZER INC-2017232196

PATIENT
  Age: 72 Year
  Sex: Female
  Weight: 40 kg

DRUGS (2)
  1. XELJANZ XR [Suspect]
     Active Substance: TOFACITINIB CITRATE
     Indication: ARTHRITIS
  2. XELJANZ XR [Suspect]
     Active Substance: TOFACITINIB CITRATE
     Indication: RHEUMATOID ARTHRITIS
     Dosage: 11 MG, 1X/DAY
     Route: 048
     Dates: end: 2019

REACTIONS (6)
  - Oral infection [Unknown]
  - Abdominal discomfort [Not Recovered/Not Resolved]
  - Nervous system disorder [Unknown]
  - Tooth infection [Recovered/Resolved]
  - Localised infection [Unknown]
  - Underweight [Not Recovered/Not Resolved]

NARRATIVE: CASE EVENT DATE: 201809
